FAERS Safety Report 24881176 (Version 1)
Quarter: 2025Q1

REPORT INFORMATION
  Report Type: Spontaneous
  Country: BE (occurrence: BE)
  Receive Date: 20250124
  Receipt Date: 20250124
  Transmission Date: 20250409
  Serious: Yes (Other)
  Sender: NOVO NORDISK
  Company Number: BE-NOVOPROD-1350919

PATIENT

DRUGS (1)
  1. RYBELSUS [Suspect]
     Active Substance: SEMAGLUTIDE
     Indication: Product used for unknown indication

REACTIONS (4)
  - Glomerular filtration rate decreased [Unknown]
  - Condition aggravated [Unknown]
  - Dehydration [Unknown]
  - Nausea [Unknown]
